FAERS Safety Report 20885192 (Version 2)
Quarter: 2022Q2

REPORT INFORMATION
  Report Type: Spontaneous
  Country: DE (occurrence: DE)
  Receive Date: 20220527
  Receipt Date: 20220601
  Transmission Date: 20220721
  Serious: Yes (Life-Threatening, Other)
  Sender: FDA-Public Use
  Company Number: DE-ANIPHARMA-2022-DE-000062

PATIENT
  Sex: Female

DRUGS (13)
  1. CANDESARTAN CILEXETIL [Suspect]
     Active Substance: CANDESARTAN CILEXETIL
     Indication: Product used for unknown indication
     Dosage: 1 DF DAILY
     Route: 048
  2. HYDROCORTISONE [Suspect]
     Active Substance: HYDROCORTISONE
     Dosage: 1 DF DAILY
     Route: 065
  3. FLUDROCORTISONE [Suspect]
     Active Substance: FLUDROCORTISONE
     Dosage: 1 DF DAILY
     Route: 065
  4. HERBALS [Suspect]
     Active Substance: HERBALS
     Dosage: UNK UNK, TID, (20-20-20 DROPS)
     Route: 065
  5. METAMIZOLE [Suspect]
     Active Substance: METAMIZOLE
     Dosage: 3 DF DAILY
     Route: 065
  6. OMEPRAZOLE [Suspect]
     Active Substance: OMEPRAZOLE
     Dosage: 2 DF DAILY
     Route: 048
  7. VITAMIN D [Suspect]
     Active Substance: VITAMIN D NOS
     Dosage: 1 DF DAILY
     Route: 065
  8. LEVOTHYROXINE [Suspect]
     Active Substance: LEVOTHYROXINE
     Dosage: 1 DF DAILY
     Route: 065
  9. ETILEFRINE HYDROCHLORIDE [Suspect]
     Active Substance: ETILEFRINE HYDROCHLORIDE
     Dosage: 1 DF DAILY
     Route: 065
  10. TRAMADOL [Suspect]
     Active Substance: TRAMADOL
     Dosage: 2 DF DAILY
     Route: 065
  11. HYDROCORTISONE [Suspect]
     Active Substance: HYDROCORTISONE
     Dosage: UNK,(1-2-2, IN EVENING, 20-40 MG ADDITINALLY)
     Route: 065
  12. TRAMADOL [Suspect]
     Active Substance: TRAMADOL
     Dosage: 1 DF DAILY
     Route: 065
  13. LERCANIDIPINE [Suspect]
     Active Substance: LERCANIDIPINE
     Dosage: 1 DF DAILY
     Route: 065

REACTIONS (4)
  - Back pain [Unknown]
  - Addison^s disease [Not Recovered/Not Resolved]
  - Metastatic malignant melanoma [Unknown]
  - Stress [Unknown]

NARRATIVE: CASE EVENT DATE: 20170801
